FAERS Safety Report 22066197 (Version 1)
Quarter: 2023Q1

REPORT INFORMATION
  Report Type: Spontaneous
  Country: US (occurrence: None)
  Receive Date: 20230304
  Receipt Date: 20230304
  Transmission Date: 20230417
  Serious: No
  Sender: FDA-Public Use
  Company Number: None

PATIENT
  Age: 36 Year
  Sex: Female

DRUGS (1)
  1. KESIMPTA [Suspect]
     Active Substance: OFATUMUMAB
     Dosage: OTHER FREQUENCY : OTHER;?
     Route: 058

REACTIONS (8)
  - Mobility decreased [None]
  - Headache [None]
  - Tremor [None]
  - Therapy interrupted [None]
  - Hypoaesthesia [None]
  - Arthralgia [None]
  - Eye pain [None]
  - Condition aggravated [None]

NARRATIVE: CASE EVENT DATE: 20230228
